FAERS Safety Report 9235895 (Version 1)
Quarter: 2013Q2

REPORT INFORMATION
  Report Type: Report from Study
  Country: JP (occurrence: JP)
  Receive Date: 20130417
  Receipt Date: 20130417
  Transmission Date: 20140414
  Serious: Yes (Other)
  Sender: FDA-Public Use
  Company Number: JP-ASTELLAS-2007JP001336

PATIENT
  Age: 7 Year
  Sex: Female

DRUGS (15)
  1. TACROLIMUS OINTMENT [Suspect]
     Indication: DERMATITIS ATOPIC
     Dosage: 0.03 %, UNK
     Route: 061
  2. TACROLIMUS OINTMENT [Suspect]
     Dosage: 0.03 %, UNK
     Route: 061
  3. WHITE PETROLEUM [Concomitant]
     Indication: DERMATITIS ATOPIC
     Dosage: UNK
     Route: 061
     Dates: end: 20100203
  4. LOCOID [Concomitant]
     Indication: DERMATITIS ATOPIC
     Dosage: UNK
     Route: 061
     Dates: end: 20100203
  5. HIRUDOID [Concomitant]
     Indication: DERMATITIS ATOPIC
     Dosage: UNK
     Route: 061
  6. RINDERON V [Concomitant]
     Indication: DERMATITIS ATOPIC
     Dosage: 0.5 G, UNKNOWN/D
     Route: 061
  7. RINDERON-V [Concomitant]
     Indication: DERMATITIS ATOPIC
     Route: 061
  8. RINDERON-V [Concomitant]
     Dosage: 0.05 G, UNKNOWN/D
     Route: 061
     Dates: start: 20040401
  9. FULMETA [Concomitant]
     Indication: DERMATITIS ATOPIC
     Dosage: 0.5 G, UNKNOWN/D
     Route: 061
  10. ANTEBATE [Concomitant]
     Indication: DERMATITIS ATOPIC
     Dosage: 0.1 G, UNKNOWN/D
     Route: 061
  11. CALONAL [Concomitant]
     Indication: DYSMENORRHOEA
     Dosage: 300 MG, UID/QD
     Route: 048
  12. CLARITIN [Concomitant]
     Indication: DERMATITIS ATOPIC
     Dosage: 10 MG, UNKNOWN/D
     Route: 048
  13. ZADITEN [Concomitant]
     Indication: DERMATITIS ATOPIC
     Dosage: 0.7 MG, UNKNOWN/D
     Route: 048
  14. CEFZON [Concomitant]
     Indication: FOLLICULITIS
     Dosage: 200 MG, UNKNOWN/D
     Route: 048
     Dates: start: 20030821, end: 20030824
  15. ARASENA A [Concomitant]
     Indication: HERPES SIMPLEX
     Route: 061

REACTIONS (4)
  - Off label use [Unknown]
  - Herpes simplex [Recovered/Resolved]
  - Folliculitis [Recovered/Resolved]
  - Glomerulonephritis [Not Recovered/Not Resolved]
